FAERS Safety Report 4893947-3 (Version None)
Quarter: 2006Q1

REPORT INFORMATION
  Report Type: 
  Country: None (occurrence: None)
  Receive Date: 20060127
  Receipt Date: 20050309
  Transmission Date: 20060701
  Serious: No
  Sender: FDA-Public Use
  Company Number: US-GLAXOSMITHKLINE-A0549030A

PATIENT
  Age: 57 Year
  Sex: Female

DRUGS (3)
  1. WELLBUTRIN [Suspect]
     Indication: DEPRESSION
     Dosage: 400MG TWICE PER DAY
     Route: 048
     Dates: start: 19940101
  2. VENTOLIN [Concomitant]
  3. CELEBREX [Concomitant]

REACTIONS (1)
  - LIBIDO DECREASED [None]
